FAERS Safety Report 12984008 (Version 1)
Quarter: 2016Q4

REPORT INFORMATION
  Report Type: Report from Study
  Country: CA (occurrence: CA)
  Receive Date: 20161129
  Receipt Date: 20161129
  Transmission Date: 20170207
  Serious: Yes (Other)
  Sender: FDA-Public Use
  Company Number: PHHY2015CA050337

PATIENT
  Age: 50 Year
  Sex: Female

DRUGS (5)
  1. GLEEVEC [Suspect]
     Active Substance: IMATINIB MESYLATE
     Dosage: 600 MG, QD
     Route: 048
     Dates: start: 20160712
  2. GLEEVEC [Suspect]
     Active Substance: IMATINIB MESYLATE
     Indication: GASTROINTESTINAL STROMAL TUMOUR
     Dosage: 400 MG, QD
     Route: 048
     Dates: start: 20150401
  3. GLEEVEC [Suspect]
     Active Substance: IMATINIB MESYLATE
     Dosage: 800 MG, QD
     Route: 048
     Dates: start: 20161114
  4. IRON [Concomitant]
     Active Substance: IRON
     Indication: PRODUCT USED FOR UNKNOWN INDICATION
     Dosage: UNK
     Route: 065
  5. TECTA [Concomitant]
     Active Substance: PANTOPRAZOLE MAGNESIUM
     Indication: PRODUCT USED FOR UNKNOWN INDICATION
     Dosage: UNK
     Route: 065

REACTIONS (37)
  - Painful respiration [Unknown]
  - Peripheral swelling [Recovering/Resolving]
  - Joint stiffness [Unknown]
  - Headache [Unknown]
  - Malignant neoplasm progression [Unknown]
  - Hair growth abnormal [Unknown]
  - Muscle tightness [Unknown]
  - Feeling abnormal [Unknown]
  - Back pain [Recovered/Resolved]
  - Night sweats [Unknown]
  - Tumour pain [Recovering/Resolving]
  - Musculoskeletal pain [Unknown]
  - Hepatic neoplasm [Unknown]
  - Increased appetite [Unknown]
  - Fluid retention [Recovering/Resolving]
  - Abdominal discomfort [Unknown]
  - Movement disorder [Unknown]
  - Feeling cold [Unknown]
  - Diarrhoea [Recovered/Resolved]
  - Diarrhoea [Not Recovered/Not Resolved]
  - Decreased appetite [Unknown]
  - Gastrointestinal stromal tumour [Unknown]
  - Dyspnoea [Unknown]
  - Myalgia [Recovered/Resolved]
  - Asthenia [Unknown]
  - Pain [Unknown]
  - Internal haemorrhage [Unknown]
  - Nausea [Unknown]
  - Cough [Unknown]
  - Myalgia [Not Recovered/Not Resolved]
  - Tumour compression [Unknown]
  - Gastrointestinal sounds abnormal [Unknown]
  - Scar [Unknown]
  - Nasopharyngitis [Recovered/Resolved]
  - Fatigue [Unknown]
  - Musculoskeletal stiffness [Unknown]
  - Arthralgia [Not Recovered/Not Resolved]

NARRATIVE: CASE EVENT DATE: 20150419
